FAERS Safety Report 12592385 (Version 1)
Quarter: 2016Q3

REPORT INFORMATION
  Report Type: Spontaneous
  Country: US (occurrence: US)
  Receive Date: 20160726
  Receipt Date: 20160726
  Transmission Date: 20161109
  Serious: No
  Sender: FDA-Public Use
  Company Number: US-VERTEX PHARMACEUTICALS-2016-004423

PATIENT
  Age: 36 Year
  Sex: Female

DRUGS (2)
  1. AQUADEKS [Concomitant]
     Active Substance: MINERALS\VITAMINS
  2. KALYDECO [Suspect]
     Active Substance: IVACAFTOR
     Indication: CYSTIC FIBROSIS
     Dosage: 150 MG, BID
     Route: 048
     Dates: start: 20150511

REACTIONS (2)
  - Feeding disorder [Unknown]
  - Drug dose omission [None]

NARRATIVE: CASE EVENT DATE: 201607
